FAERS Safety Report 24013224 (Version 3)
Quarter: 2024Q3

REPORT INFORMATION
  Report Type: Spontaneous
  Country: DE (occurrence: DE)
  Receive Date: 20240626
  Receipt Date: 20240720
  Transmission Date: 20241017
  Serious: Yes (Death, Hospitalization, Other)
  Sender: CELLTRION
  Company Number: DE-CELLTRION INC.-2024DE015014

PATIENT

DRUGS (10)
  1. RITUXIMAB [Suspect]
     Active Substance: RITUXIMAB
     Indication: Follicular lymphoma
     Dosage: 610 MG
     Route: 042
     Dates: start: 20231122, end: 20240122
  2. ADRIAMYCIN [Suspect]
     Active Substance: DOXORUBICIN HYDROCHLORIDE
     Indication: Follicular lymphoma
     Dosage: 81 MG
     Route: 042
     Dates: start: 20231207, end: 20240123
  3. VINCRISTINE [Suspect]
     Active Substance: VINCRISTINE
     Indication: Follicular lymphoma
     Dosage: 1.75 MILLIGRAM
     Route: 042
     Dates: start: 20231207, end: 20240123
  4. CYCLOPHOSPHAMIDE [Suspect]
     Active Substance: CYCLOPHOSPHAMIDE
     Indication: Follicular lymphoma
     Dosage: 1220 MG
     Route: 042
     Dates: start: 20231123, end: 20240123
  5. PREDNISOLONE [Suspect]
     Active Substance: PREDNISOLONE
     Indication: Follicular lymphoma
     Dosage: UNK
     Route: 065
     Dates: start: 20231208
  6. ACYCLOVIR [Concomitant]
     Active Substance: ACYCLOVIR
     Dosage: UNK
     Dates: start: 20231206
  7. MESNA [Concomitant]
     Active Substance: MESNA
     Dosage: UNK
     Dates: start: 20231207
  8. NEULASTA [Concomitant]
     Active Substance: PEGFILGRASTIM
  9. PANTOPRAZOLE [Concomitant]
     Active Substance: PANTOPRAZOLE
     Dosage: UNK
     Dates: start: 20231206
  10. SULFAMETHOXAZOLE\TRIMETHOPRIM [Concomitant]
     Active Substance: SULFAMETHOXAZOLE\TRIMETHOPRIM
     Dosage: UNK
     Dates: start: 20231207

REACTIONS (6)
  - Disease progression [Fatal]
  - Sepsis [Fatal]
  - Cancer fatigue [Recovering/Resolving]
  - Febrile neutropenia [Recovering/Resolving]
  - Dysphagia [Recovering/Resolving]
  - Oral candidiasis [Recovering/Resolving]

NARRATIVE: CASE EVENT DATE: 20240128
